FAERS Safety Report 6179125-9 (Version None)
Quarter: 2009Q2

REPORT INFORMATION
  Report Type: 
  Country: None (occurrence: None)
  Receive Date: 20090505
  Receipt Date: 20090423
  Transmission Date: 20091009
  Serious: Yes (Hospitalization)
  Sender: FDA-Public Use
  Company Number: BE-PFIZER INC-2009187818

PATIENT

DRUGS (6)
  1. SUTENT [Suspect]
     Indication: MALIGNANT MELANOMA
     Dosage: 50 MG, 1X/DAY
     Route: 048
     Dates: start: 20090304, end: 20090316
  2. IRBESARTAN [Concomitant]
     Dosage: UNK
  3. METFORMIN HYDROCHLORIDE [Concomitant]
     Dosage: UNK
  4. BUMETANIDE [Concomitant]
  5. ACETYLSALICYLIC ACID [Concomitant]
     Dosage: UNK
  6. PARACETAMOL [Concomitant]
     Dosage: UNK

REACTIONS (3)
  - ASTHENIA [None]
  - GROIN PAIN [None]
  - PERFORMANCE STATUS DECREASED [None]
